FAERS Safety Report 18920660 (Version 1)
Quarter: 2021Q1

REPORT INFORMATION
  Report Type: Spontaneous
  Country: PT (occurrence: PT)
  Receive Date: 20210222
  Receipt Date: 20210222
  Transmission Date: 20210420
  Serious: Yes (Other)
  Sender: FDA-Public Use
  Company Number: PT-TEVA-2021-PT-1881724

PATIENT
  Age: 61 Year
  Sex: Male

DRUGS (5)
  1. XARELTO [Concomitant]
     Active Substance: RIVAROXABAN
  2. COTRIMOXAZOL RATIOPHARM [Suspect]
     Active Substance: SULFAMETHOXAZOLE\TRIMETHOPRIM
     Indication: INFECTION
     Dosage: 2 DOSAGE FORMS DAILY; BID
     Dates: start: 20210120, end: 20210121
  3. GINKGO BILOBA [Concomitant]
     Active Substance: GINKGO
  4. SIMVASTATIN. [Concomitant]
     Active Substance: SIMVASTATIN
  5. CILOSTAZOL FERRER [Concomitant]

REACTIONS (1)
  - Rash pruritic [Recovering/Resolving]

NARRATIVE: CASE EVENT DATE: 20210121
